FAERS Safety Report 9642784 (Version 3)
Quarter: 2013Q4

REPORT INFORMATION
  Report Type: Report from Study
  Country: CA (occurrence: CA)
  Receive Date: 20131024
  Receipt Date: 20131129
  Transmission Date: 20140711
  Serious: Yes (Hospitalization, Other)
  Sender: FDA-Public Use
  Company Number: CA-JNJFOC-20130910508

PATIENT
  Age: 61 Year
  Sex: Male
  Weight: 106 kg

DRUGS (14)
  1. REMICADE [Suspect]
     Indication: CROHN^S DISEASE
     Route: 042
  2. REMICADE [Suspect]
     Indication: CROHN^S DISEASE
     Route: 042
  3. FERROUS SULPHATE [Concomitant]
     Route: 065
  4. ALLOPURINOL [Concomitant]
     Route: 065
  5. METOPROLOL [Concomitant]
     Route: 065
  6. VITAMIN B12 [Concomitant]
     Route: 065
  7. MAGNESIUM [Concomitant]
     Route: 065
  8. OXEZE [Concomitant]
     Route: 065
  9. FOLIC ACID [Concomitant]
     Route: 065
  10. VITAMIN D [Concomitant]
     Route: 065
  11. RAMIPRIL [Concomitant]
     Route: 065
  12. FLOVENT [Concomitant]
     Route: 065
  13. ATROVENT [Concomitant]
     Route: 065
  14. VITAMIN [Concomitant]
     Route: 065

REACTIONS (5)
  - Weight decreased [Unknown]
  - Intestinal resection [Unknown]
  - Ileostomy [Unknown]
  - Postoperative wound infection [Unknown]
  - Blood magnesium decreased [Unknown]
